FAERS Safety Report 22660122 (Version 1)
Quarter: 2023Q2

REPORT INFORMATION
  Report Type: Report from Study
  Country: US (occurrence: US)
  Receive Date: 20230630
  Receipt Date: 20230630
  Transmission Date: 20230722
  Serious: Yes (Death, Hospitalization)
  Sender: FDA-Public Use
  Company Number: US-MYLANLABS-2023M1069530

PATIENT
  Age: 24 Year
  Sex: Female

DRUGS (2)
  1. CASPOFUNGIN [Suspect]
     Active Substance: CASPOFUNGIN
     Indication: Disseminated aspergillosis
     Dosage: UNK
     Route: 065
  2. CASPOFUNGIN [Suspect]
     Active Substance: CASPOFUNGIN
     Indication: Aspergillus infection

REACTIONS (1)
  - Drug ineffective [Fatal]
